FAERS Safety Report 5771785-7 (Version None)
Quarter: 2008Q2

REPORT INFORMATION
  Report Type: 
  Country: None (occurrence: None)
  Receive Date: 20080601
  Receipt Date: 20080325
  Transmission Date: 20081010
  Serious: No
  Sender: FDA-Public Use
  Company Number: US200802006690

PATIENT
  Age: 49 Year
  Sex: Female

DRUGS (2)
  1. BYETTA [Suspect]
     Dosage: 10 UG, 2/D, SUBCUTANEOUS ; 10 UG, 2/D
     Route: 058
     Dates: start: 20061201, end: 20070301
  2. BYETTA [Suspect]
     Dosage: 10 UG, 2/D, SUBCUTANEOUS ; 10 UG, 2/D
     Route: 058
     Dates: start: 20071001

REACTIONS (2)
  - RHEUMATOID ARTHRITIS [None]
  - WEIGHT DECREASED [None]
